FAERS Safety Report 21683188 (Version 1)
Quarter: 2022Q4

REPORT INFORMATION
  Report Type: Spontaneous
  Country: US (occurrence: None)
  Receive Date: 20221202
  Receipt Date: 20221202
  Transmission Date: 20230113
  Serious: Yes (Other)
  Sender: FDA-Public Use
  Company Number: None

PATIENT
  Age: 60 Year
  Sex: Female
  Weight: 56.25 kg

DRUGS (1)
  1. BUPRENORPHINE [Suspect]
     Active Substance: BUPRENORPHINE
     Indication: Pain
     Dosage: FREQUENCY : EVERY 8 HOURS;?
     Route: 060
     Dates: start: 20181020, end: 20211210

REACTIONS (2)
  - Tooth fracture [None]
  - Tooth injury [None]

NARRATIVE: CASE EVENT DATE: 20210815
